FAERS Safety Report 10060522 (Version 1)
Quarter: 2014Q2

REPORT INFORMATION
  Report Type: Spontaneous
  Country: US (occurrence: US)
  Receive Date: 20140404
  Receipt Date: 20140404
  Transmission Date: 20141212
  Serious: No
  Sender: FDA-Public Use
  Company Number: US-B.I. PHARMACEUTICALS,INC./RIDGEFIELD-2014-BI-14814BP

PATIENT
  Sex: Female
  Weight: 58 kg

DRUGS (6)
  1. PRADAXA [Suspect]
     Indication: ATRIAL FIBRILLATION
     Dosage: 300 MG
     Route: 048
     Dates: start: 2012
  2. PROPAFENONE HCL [Concomitant]
     Indication: ATRIAL FIBRILLATION
     Dosage: 450 MG
     Route: 048
  3. NIFEDIPINE ER [Concomitant]
     Indication: HYPERTENSION
     Dosage: 30 MG
     Route: 048
  4. PRAVASTATIN SODIUM [Concomitant]
     Indication: BLOOD CHOLESTEROL INCREASED
     Dosage: 40 MG
     Route: 048
  5. OMEPRAZOLE [Concomitant]
     Indication: OESOPHAGEAL DISCOMFORT
     Dosage: 40 MG
     Route: 048
  6. LOPERAMIDE [Concomitant]
     Indication: COLITIS
     Dosage: 2 MG
     Route: 048

REACTIONS (3)
  - Drug effect increased [Not Recovered/Not Resolved]
  - Feeling cold [Not Recovered/Not Resolved]
  - Weight increased [Not Recovered/Not Resolved]
